FAERS Safety Report 25903733 (Version 2)
Quarter: 2025Q4

REPORT INFORMATION
  Report Type: Spontaneous
  Country: JP (occurrence: JP)
  Receive Date: 20251010
  Receipt Date: 20251128
  Transmission Date: 20260118
  Serious: Yes (Death, Other)
  Sender: ALEXION PHARMACEUTICALS
  Company Number: JP-AstraZeneca-CH-00965594A

PATIENT
  Age: 10 Decade
  Sex: Male
  Weight: 80.4 kg

DRUGS (10)
  1. LOKELMA [Suspect]
     Active Substance: SODIUM ZIRCONIUM CYCLOSILICATE
     Indication: Hyperkalaemia
     Dosage: 5 GRAM, QD
     Dates: start: 20240305
  2. TOPIROXOSTAT [Concomitant]
     Active Substance: TOPIROXOSTAT
  3. SODIUM BICARBONATE [Concomitant]
     Active Substance: SODIUM BICARBONATE
  4. SORBITOL [Concomitant]
     Active Substance: SORBITOL
  5. AZOSEMIDE [Concomitant]
     Active Substance: AZOSEMIDE
  6. CALCITRIOL [Concomitant]
     Active Substance: CALCITRIOL
  7. CILNIDIPINE [Concomitant]
     Active Substance: CILNIDIPINE
  8. NIFEDIPINE [Concomitant]
     Active Substance: NIFEDIPINE
  9. D-Sorbitol [Concomitant]
  10. Noveltin [Concomitant]

REACTIONS (5)
  - Marasmus [Fatal]
  - Dyspnoea [Fatal]
  - Weight increased [Fatal]
  - Deafness [Fatal]
  - Pleural effusion [Fatal]

NARRATIVE: CASE EVENT DATE: 20240731
